FAERS Safety Report 16889318 (Version 6)
Quarter: 2020Q2

REPORT INFORMATION
  Report Type: Spontaneous
  Country: US (occurrence: US)
  Receive Date: 20191007
  Receipt Date: 20200415
  Transmission Date: 20200713
  Serious: Yes (Hospitalization, Other)
  Sender: FDA-Public Use
  Company Number: US-PFIZER INC-2019423802

PATIENT
  Age: 66 Year
  Sex: Male
  Weight: 86 kg

DRUGS (2)
  1. VFEND [Suspect]
     Active Substance: VORICONAZOLE
     Indication: ACUTE MYELOID LEUKAEMIA
     Dosage: 2 TABLETS, DAILY (ONE IN THE MORNING AND ONE IN THE EVENING)
     Dates: start: 201902
  2. VFEND [Suspect]
     Active Substance: VORICONAZOLE
     Indication: STEM CELL TRANSPLANT
     Dosage: 300 MG, 2X/DAY (BREAKING THE 200MG TABLETS TO GIVE THE FULL DOSAGE/ONE AND HALF 200 MG TABLET)
     Route: 048

REACTIONS (5)
  - Dysstasia [Unknown]
  - Graft versus host disease in gastrointestinal tract [Recovering/Resolving]
  - Asthenia [Unknown]
  - Product use in unapproved indication [Unknown]
  - Off label use [Unknown]

NARRATIVE: CASE EVENT DATE: 20190828
